FAERS Safety Report 8817218 (Version 1)
Quarter: 2012Q4

REPORT INFORMATION
  Report Type: 
  Country: US (occurrence: US)
  Receive Date: 20121001
  Receipt Date: 20121001
  Transmission Date: 20130627
  Serious: Yes (Hospitalization)
  Sender: FDA-Public Use
  Company Number: US-ELI_LILLY_AND_COMPANY-US201208007261

PATIENT
  Age: 52 Year
  Sex: Male
  Weight: 88.44 kg

DRUGS (5)
  1. EFFIENT [Suspect]
     Dosage: 10 mg, qd
     Dates: start: 20110818
  2. ASA [Concomitant]
     Dosage: 81 mg, UNK
  3. COREG [Concomitant]
     Dosage: 3.125 mg, bid
  4. VASOTEC                            /00574902/ [Concomitant]
     Dosage: 5 mg, qd
  5. LIPITOR [Concomitant]
     Dosage: 80 mg, UNK

REACTIONS (1)
  - Pleurisy [Unknown]
